FAERS Safety Report 4654753-8 (Version None)
Quarter: 2005Q2

REPORT INFORMATION
  Report Type: 
  Country: None (occurrence: None)
  Receive Date: 20050505
  Receipt Date: 20050505
  Transmission Date: 20051028
  Serious: Yes (Other)
  Sender: FDA-Public Use
  Company Number: None

PATIENT
  Age: 61 Year
  Sex: Male
  Weight: 99.7913 kg

DRUGS (6)
  1. PROCRIT [Suspect]
     Indication: HAEMOGLOBIN DECREASED
     Dosage: 1 ML   ONCE WEEKLY   SUBCUTANEO
     Route: 058
     Dates: start: 20050503, end: 20050504
  2. PROCRIT [Suspect]
     Indication: PREOPERATIVE CARE
     Dosage: 1 ML   ONCE WEEKLY   SUBCUTANEO
     Route: 058
     Dates: start: 20050503, end: 20050504
  3. ALTACE [Concomitant]
  4. NORVASC [Concomitant]
  5. HYDROCHLOROTHIAZIDE [Concomitant]
  6. LIPITOR [Concomitant]

REACTIONS (3)
  - DIZZINESS [None]
  - HEADACHE [None]
  - NAUSEA [None]
